FAERS Safety Report 11409606 (Version 2)
Quarter: 2015Q3

REPORT INFORMATION
  Report Type: Report from Study
  Country: AR (occurrence: AR)
  Receive Date: 20150824
  Receipt Date: 20150908
  Transmission Date: 20151125
  Serious: Yes (Other)
  Sender: FDA-Public Use
  Company Number: PHHY2015AR100761

PATIENT
  Age: 69 Year
  Sex: Male

DRUGS (2)
  1. CARVEDILOL. [Concomitant]
     Active Substance: CARVEDILOL
     Indication: PRODUCT USED FOR UNKNOWN INDICATION
     Dosage: UNK
     Route: 065
  2. DIOVAN [Suspect]
     Active Substance: VALSARTAN
     Indication: CARDIAC DISORDER
     Dosage: 160 MG, QD
     Route: 065
     Dates: start: 2011, end: 20150818

REACTIONS (7)
  - Aneurysm [Unknown]
  - Diabetes mellitus [Unknown]
  - Dizziness [Unknown]
  - Brain neoplasm [Unknown]
  - Product use issue [Unknown]
  - Anxiety [Unknown]
  - Blood pressure increased [Recovered/Resolved]

NARRATIVE: CASE EVENT DATE: 20150811
